FAERS Safety Report 16502266 (Version 1)
Quarter: 2019Q3

REPORT INFORMATION
  Report Type: Spontaneous
  Country: US (occurrence: US)
  Receive Date: 20190630
  Receipt Date: 20190630
  Transmission Date: 20191004
  Serious: Yes (Other)
  Sender: FDA-Public Use
  Company Number: None

PATIENT
  Age: 35 Year
  Sex: Female
  Weight: 69.75 kg

DRUGS (1)
  1. JET-AVERT MOTION SICKNESS AID [Suspect]
     Active Substance: MECLIZINE HYDROCHLORIDE
     Indication: VERTIGO
     Dosage: ?          QUANTITY:1 TABLET(S);?
     Route: 048
     Dates: start: 20190629, end: 20190629

REACTIONS (4)
  - Product substitution issue [None]
  - Fatigue [None]
  - Cognitive disorder [None]
  - Euphoric mood [None]

NARRATIVE: CASE EVENT DATE: 20190629
